FAERS Safety Report 8793925 (Version 2)
Quarter: 2012Q4

REPORT INFORMATION
  Report Type: 
  Country: US (occurrence: US)
  Receive Date: 20120917
  Receipt Date: 20121106
  Transmission Date: 20130627
  Serious: Yes (Death)
  Sender: FDA-Public Use
  Company Number: PHEH2012US018005

PATIENT
  Sex: Female

DRUGS (9)
  1. EXJADE [Suspect]
     Indication: IRON OVERLOAD
     Dosage: 1625 mg, UNK
     Route: 048
  2. CALCIUM [Concomitant]
     Dosage: 500 mg, UNK
  3. MULTI MAX [Concomitant]
     Dosage: UNK UKN, UNK
  4. INDERAL [Concomitant]
     Dosage: 10 mg, UNK
  5. LISINOPRIL [Concomitant]
     Dosage: 5 mg, UNK
  6. OXYBUTYNIN [Concomitant]
     Dosage: 10 mg, UNK
  7. ROXICET [Concomitant]
     Dosage: UNK UKN, UNK, 5-500 mg
  8. ATIVAN [Concomitant]
     Dosage: 0.5 mg, UNK
  9. BUMEX [Concomitant]
     Dosage: 2 mg, UNK

REACTIONS (1)
  - Febrile neutropenia [Fatal]
